FAERS Safety Report 9303920 (Version 1)
Quarter: 2013Q2

REPORT INFORMATION
  Report Type: Spontaneous
  Country: US (occurrence: None)
  Receive Date: 20130520
  Receipt Date: 20130520
  Transmission Date: 20140414
  Serious: Yes (Hospitalization)
  Sender: FDA-Public Use
  Company Number: 1717115

PATIENT
  Age: 45 Year
  Sex: Female

DRUGS (4)
  1. TRINOTECAN [Suspect]
     Indication: ASTROCYTOMA
  2. TEMOZOLOMIDE [Suspect]
     Indication: ASTROCYTOMA
  3. BEVACIZUMAB [Suspect]
     Indication: ASTROCYTOMA
  4. THERAPEUTIC RADIOPHARMACEUTICALS [Suspect]
     Indication: ASTROCYTOMA
     Dosage: 25 Y

REACTIONS (4)
  - Loss of consciousness [None]
  - Hydrocephalus [None]
  - Intracranial aneurysm [None]
  - Intracranial aneurysm [None]
